FAERS Safety Report 7024027-9 (Version None)
Quarter: 2010Q4

REPORT INFORMATION
  Report Type: 
  Country: None (occurrence: None)
  Receive Date: 20101001
  Receipt Date: 20100922
  Transmission Date: 20110411
  Serious: Yes (Other)
  Sender: FDA-Public Use
  Company Number: US-JNJFOC-20100808871

PATIENT
  Age: 52 Year
  Sex: Female
  Weight: 91.63 kg

DRUGS (2)
  1. EXTRA STRENGTH TYLENOL [Suspect]
     Indication: PAIN
     Dosage: 1000MG DAILY X 3-4 WEEKS
     Route: 048
  2. EXTRA STRENGTH TYLENOL [Suspect]
     Indication: HEADACHE
     Dosage: 1000MG DAILY X 3-4 WEEKS
     Route: 048

REACTIONS (2)
  - INTENTIONAL DRUG MISUSE [None]
  - ULCER HAEMORRHAGE [None]
